FAERS Safety Report 8134233-8 (Version None)
Quarter: 2012Q1

REPORT INFORMATION
  Report Type: 
  Country: None (occurrence: None)
  Receive Date: 20120209
  Receipt Date: 20120130
  Transmission Date: 20120608
  Serious: Yes (Hospitalization, Other)
  Sender: FDA-Public Use
  Company Number: 2012MA001329

PATIENT
  Sex: Male
  Weight: 97.977 kg

DRUGS (20)
  1. GEMFIBROZIL [Concomitant]
  2. METOPROLOL TARTRATE [Concomitant]
  3. ALBUTEROL [Concomitant]
  4. METFORMIN HCL [Concomitant]
  5. PERCOCET [Concomitant]
  6. PREVACID [Concomitant]
  7. ZOCOR [Concomitant]
  8. DILTIAZEM HCL [Concomitant]
  9. GLYBURIDE [Concomitant]
  10. LASIX [Concomitant]
  11. OMEPRAZOLE [Concomitant]
  12. POTASSIUM CHLORIDE [Concomitant]
  13. SALICYLATE [Concomitant]
  14. DIGOXIN [Suspect]
     Dosage: 0.25 MG;PO
     Route: 048
     Dates: start: 20060124, end: 20091216
  15. ASPIRIN [Concomitant]
  16. PLAVIX [Concomitant]
  17. METOLAZONE [Concomitant]
  18. IRON [Concomitant]
  19. JANTOVEN [Concomitant]
  20. LISINOPRIL [Concomitant]

REACTIONS (71)
  - CHRONIC OBSTRUCTIVE PULMONARY DISEASE [None]
  - CONDITION AGGRAVATED [None]
  - COUGH [None]
  - CATHETERISATION CARDIAC [None]
  - BUNDLE BRANCH BLOCK RIGHT [None]
  - CARDIOMYOPATHY [None]
  - VENTRICULAR DYSFUNCTION [None]
  - HAEMORRHOIDS [None]
  - COLON ADENOMA [None]
  - DEVICE DISLOCATION [None]
  - CHEST PAIN [None]
  - ASTHENIA [None]
  - IRON DEFICIENCY ANAEMIA [None]
  - ACUTE MYOCARDIAL INFARCTION [None]
  - WEIGHT DECREASED [None]
  - NAUSEA [None]
  - VOMITING [None]
  - LUNG INFILTRATION [None]
  - SMALL INTESTINAL OBSTRUCTION [None]
  - LEFT ATRIAL DILATATION [None]
  - PALPITATIONS [None]
  - CHRONIC GASTROINTESTINAL BLEEDING [None]
  - ARTHRALGIA [None]
  - ALTERED STATE OF CONSCIOUSNESS [None]
  - OXYGEN SATURATION DECREASED [None]
  - MALIGNANT HYPERTENSION [None]
  - DIVERTICULUM INTESTINAL [None]
  - BLOOD PRESSURE DECREASED [None]
  - DYSAESTHESIA [None]
  - MELAENA [None]
  - ABDOMINAL PAIN [None]
  - PERCUTANEOUS CORONARY INTERVENTION [None]
  - BENIGN COLONIC NEOPLASM [None]
  - TOXICITY TO VARIOUS AGENTS [None]
  - LEFT VENTRICULAR HYPERTROPHY [None]
  - CARDIOMEGALY [None]
  - RECTAL HAEMORRHAGE [None]
  - DYSPNOEA EXERTIONAL [None]
  - CHEST DISCOMFORT [None]
  - GASTRITIS EROSIVE [None]
  - HYPERHIDROSIS [None]
  - RENAL FAILURE ACUTE [None]
  - DYSSTASIA [None]
  - LEUKOCYTOSIS [None]
  - BUNDLE BRANCH BLOCK LEFT [None]
  - ACUTE CORONARY SYNDROME [None]
  - SPINAL OSTEOARTHRITIS [None]
  - BLOOD PRESSURE FLUCTUATION [None]
  - HAEMOGLOBIN DECREASED [None]
  - LEFT VENTRICULAR DYSFUNCTION [None]
  - OBESITY [None]
  - CONJUNCTIVAL DISCOLOURATION [None]
  - URINARY TRACT INFECTION [None]
  - CONFUSIONAL STATE [None]
  - PERIPHERAL VASCULAR DISORDER [None]
  - POLYP COLORECTAL [None]
  - SCOLIOSIS [None]
  - BLOOD PRESSURE INCREASED [None]
  - HEART RATE IRREGULAR [None]
  - PULSE ABSENT [None]
  - PERIPHERAL COLDNESS [None]
  - CORONARY ARTERY DISEASE [None]
  - HYPERTENSION [None]
  - TYPE 2 DIABETES MELLITUS [None]
  - HYPERLIPIDAEMIA [None]
  - HYPERKALAEMIA [None]
  - MITRAL VALVE INCOMPETENCE [None]
  - INTERVERTEBRAL DISC DEGENERATION [None]
  - GASTRITIS [None]
  - DIZZINESS [None]
  - LIMB ASYMMETRY [None]
